FAERS Safety Report 18577111 (Version 1)
Quarter: 2020Q4

REPORT INFORMATION
  Report Type: Spontaneous
  Country: NL (occurrence: None)
  Receive Date: 20201203
  Receipt Date: 20201203
  Transmission Date: 20210114
  Serious: Yes (Other)
  Sender: FDA-Public Use
  Company Number: FRESENIUS KABI-FK202012790

PATIENT
  Age: 79 Year
  Sex: Male
  Weight: 0 kg

DRUGS (1)
  1. MANNITOL (MANUFACTURER UNKNOWN) [Suspect]
     Active Substance: MANNITOL
     Indication: OCULAR HYPERTENSION
     Route: 042

REACTIONS (3)
  - Dizziness [Recovering/Resolving]
  - Hyperhidrosis [Recovering/Resolving]
  - Sinus bradycardia [Recovering/Resolving]

NARRATIVE: CASE EVENT DATE: 20200910
